FAERS Safety Report 6072369-6 (Version None)
Quarter: 2009Q1

REPORT INFORMATION
  Report Type: 
  Country: None (occurrence: None)
  Receive Date: 20090210
  Receipt Date: 20090204
  Transmission Date: 20090719
  Serious: Yes (Other)
  Sender: FDA-Public Use
  Company Number: PHHY2009IE03262

PATIENT
  Sex: Male

DRUGS (4)
  1. CLOZARIL [Suspect]
     Indication: SCHIZOPHRENIA
     Dosage: UNK
     Dates: start: 20070418
  2. DRUG THERAPY NOS [Concomitant]
  3. COMBIVENT [Concomitant]
     Dosage: UNK
  4. PULMICORT-100 [Concomitant]
     Dosage: UNK

REACTIONS (3)
  - INFECTION [None]
  - LOWER RESPIRATORY TRACT INFECTION [None]
  - ORAL CANDIDIASIS [None]
